FAERS Safety Report 6339323-8 (Version None)
Quarter: 2009Q3

REPORT INFORMATION
  Report Type: 
  Country: None (occurrence: None)
  Receive Date: 20090903
  Receipt Date: 20090824
  Transmission Date: 20100115
  Serious: Yes (Hospitalization)
  Sender: FDA-Public Use
  Company Number: B0570456A

PATIENT
  Sex: Female
  Weight: 61 kg

DRUGS (6)
  1. ARIXTRA [Suspect]
     Indication: DEEP VEIN THROMBOSIS
     Route: 058
     Dates: start: 20090108, end: 20090118
  2. KARDEGIC [Concomitant]
     Indication: CARDIOVASCULAR DISORDER
     Dosage: 75MG IN THE MORNING
     Route: 048
  3. RYTHMOL [Concomitant]
     Indication: ARRHYTHMIA
     Dosage: 150MG THREE TIMES PER DAY
     Route: 048
     Dates: start: 20020301
  4. LEVOTHYROXINE SODIUM [Concomitant]
     Dosage: 87.5MCG PER DAY
     Route: 048
     Dates: start: 20000501
  5. ATACAND [Concomitant]
     Dosage: 8MG PER DAY
     Route: 048
     Dates: start: 20080601
  6. CACIT D3 [Concomitant]
     Indication: OSTEOPENIA
     Dosage: 1SAC PER DAY
     Route: 048
     Dates: start: 20051201

REACTIONS (5)
  - HAEMATOMA [None]
  - HAEMOGLOBIN DECREASED [None]
  - HAEMORRHAGE [None]
  - INTRA-ABDOMINAL HAEMATOMA [None]
  - TACHYCARDIA [None]
